FAERS Safety Report 6986681-7 (Version None)
Quarter: 2010Q3

REPORT INFORMATION
  Report Type: 
  Country: None (occurrence: None)
  Receive Date: 20100915
  Receipt Date: 20090723
  Transmission Date: 20110219
  Serious: No
  Sender: FDA-Public Use
  Company Number: US-WYE-H10298809

PATIENT
  Sex: Female
  Weight: 72.64 kg

DRUGS (6)
  1. PRISTIQ [Suspect]
     Indication: DEPRESSION
     Route: 048
     Dates: start: 20090201
  2. IMITREX [Concomitant]
  3. PROAIR HFA [Concomitant]
  4. METOPROLOL TARTRATE [Concomitant]
  5. SINGULAIR [Concomitant]
  6. ADVAIR DISKUS 100/50 [Concomitant]

REACTIONS (2)
  - JOINT STIFFNESS [None]
  - PRURITUS [None]
